FAERS Safety Report 10048993 (Version 1)
Quarter: 2014Q1

REPORT INFORMATION
  Report Type: Spontaneous
  Country: NL (occurrence: NL)
  Receive Date: 20140331
  Receipt Date: 20140331
  Transmission Date: 20141002
  Serious: Yes (Life-Threatening, Hospitalization, Other)
  Sender: FDA-Public Use
  Company Number: NL-TAKEDA-2014TUS002435

PATIENT
  Sex: 0

DRUGS (4)
  1. COLCHICINE [Suspect]
     Dosage: 15 MG, UNK
  2. CLOMIPRAMINE [Concomitant]
     Dosage: 1600 MG, UNK
  3. FENOBARBITAL [Concomitant]
     Dosage: 600 MG, UNK
  4. BENZODIAZEPINE RELATED DRUGS [Concomitant]

REACTIONS (6)
  - Toxicity to various agents [Recovered/Resolved]
  - Shock [Recovered/Resolved]
  - Rales [Recovered/Resolved]
  - Hypoxia [Recovered/Resolved]
  - Respiratory failure [Recovered/Resolved]
  - Overdose [Recovered/Resolved]
